FAERS Safety Report 4618857-8 (Version None)
Quarter: 2005Q1

REPORT INFORMATION
  Report Type: 
  Country: None (occurrence: None)
  Receive Date: 20050323
  Receipt Date: 20050310
  Transmission Date: 20050727
  Serious: Yes (Other)
  Sender: FDA-Public Use
  Company Number: 2005044232

PATIENT
  Sex: Female
  Weight: 61.6892 kg

DRUGS (10)
  1. NEURONTIN [Suspect]
     Indication: CONVULSION
     Dosage: 800 MG (1 D), ORAL
     Route: 048
     Dates: start: 20020101
  2. NEURONTIN [Suspect]
     Indication: PAIN
     Dosage: 800 MG (1 D), ORAL
     Route: 048
     Dates: start: 20020101
  3. LITHIUM CARBONATE [Suspect]
     Indication: CONVULSION
     Dates: start: 20031201
  4. CYCLOBENZAPRINE HCL [Concomitant]
  5. THYROID TAB [Concomitant]
  6. ALL OTHER THERAPEUTIC PRODUCTS (ALL OTHER THERAPEUTIC PRODUCTS) [Concomitant]
  7. CLONAZEPAM [Concomitant]
  8. ROSIGLITAZONE MALEATE [Concomitant]
  9. NAPROXEN [Concomitant]
  10. SIMVASTATIN [Concomitant]

REACTIONS (12)
  - ALOPECIA [None]
  - ANTIPSYCHOTIC DRUG LEVEL INCREASED [None]
  - BIPOLAR DISORDER [None]
  - BLADDER PROLAPSE [None]
  - BREATH ODOUR [None]
  - DENTAL NECROSIS [None]
  - DRUG INEFFECTIVE [None]
  - HYPOAESTHESIA [None]
  - MEDICATION ERROR [None]
  - PANIC ATTACK [None]
  - TOOTH DISCOLOURATION [None]
  - TOOTH LOSS [None]
